FAERS Safety Report 12984617 (Version 1)
Quarter: 2016Q4

REPORT INFORMATION
  Report Type: Spontaneous
  Country: DE (occurrence: DE)
  Receive Date: 20161129
  Receipt Date: 20161129
  Transmission Date: 20170207
  Serious: Yes (Life-Threatening, Hospitalization, Other)
  Sender: FDA-Public Use
  Company Number: DE-GLAXOSMITHKLINE-DE2016GSK174103

PATIENT
  Sex: Male

DRUGS (1)
  1. VOLTAREN SCHMERZGEL FORTE [Suspect]
     Active Substance: DICLOFENAC DIETHYLAMINE
     Indication: PAIN
     Dosage: 2 DF, EVERY 3 WEEKS
     Route: 061

REACTIONS (5)
  - Coma [Recovered/Resolved]
  - Renal pain [Unknown]
  - Prescribed overdose [Unknown]
  - Renal failure [Unknown]
  - Blood creatinine increased [Unknown]
